FAERS Safety Report 9283498 (Version 1)
Quarter: 2013Q2

REPORT INFORMATION
  Report Type: Spontaneous
  Country: US (occurrence: US)
  Receive Date: 20130510
  Receipt Date: 20130510
  Transmission Date: 20140414
  Serious: No
  Sender: FDA-Public Use
  Company Number: US-GLAXOSMITHKLINE-A1012700A

PATIENT
  Age: 49 Year
  Sex: Female
  Weight: 94 kg

DRUGS (14)
  1. TYKERB [Suspect]
     Indication: PRODUCT USED FOR UNKNOWN INDICATION
     Dosage: 1250MG PER DAY
     Route: 048
  2. XELODA [Concomitant]
  3. GRANISETRON [Concomitant]
  4. LISINOPRIL [Concomitant]
  5. ANASTROZOLE [Concomitant]
  6. HYDROCODONE/ APAP [Concomitant]
  7. PHENERGAN [Concomitant]
  8. SYNTHROID [Concomitant]
  9. IBUPROFEN [Concomitant]
  10. CYCLOBENZAPRINE [Concomitant]
  11. LORAZEPAM [Concomitant]
  12. PATANOL [Concomitant]
  13. ZOLPIDEM [Concomitant]
  14. VOLTAREN [Concomitant]

REACTIONS (2)
  - Oropharyngeal pain [Unknown]
  - Diarrhoea [Recovered/Resolved]
